FAERS Safety Report 6201452-7 (Version None)
Quarter: 2009Q2

REPORT INFORMATION
  Report Type: 
  Country: None (occurrence: None)
  Receive Date: 20090526
  Receipt Date: 20090512
  Transmission Date: 20091009
  Serious: Yes (Disabling, Other)
  Sender: FDA-Public Use
  Company Number: US-ROCHE-603710

PATIENT
  Sex: Male
  Weight: 68.9 kg

DRUGS (8)
  1. PEG-INTERFERON A-2A (RO 25-8310) [Suspect]
     Indication: HEPATITIS C
     Dosage: FORM: PRE-FILLED SYRINGE
     Route: 065
     Dates: start: 20081106
  2. RIBAVIRIN [Suspect]
     Indication: HEPATITIS C
     Dosage: DIVIDED DOSES, 2 DOSE FORM IN AM, 3 DOSE FORM IN PM
     Route: 048
     Dates: start: 20081106
  3. ZOLOFT [Concomitant]
     Indication: DEPRESSION
     Dosage: EVERY DAY
     Route: 048
  4. MORPHINE SULFATE [Concomitant]
     Route: 048
  5. OXYCODONE HCL [Concomitant]
     Route: 048
  6. TRAZODONE HCL [Concomitant]
     Indication: INSOMNIA
     Dosage: DOSAGE REPORTED : QHS (AT BEDTIME)
     Route: 048
  7. PROCRIT [Concomitant]
  8. PREVACID [Concomitant]
     Dosage: OTHER INDICATION: NAUSEA

REACTIONS (10)
  - ABDOMINAL DISCOMFORT [None]
  - ANAEMIA [None]
  - BLOOD DISORDER [None]
  - CHOLECYSTECTOMY [None]
  - DYSGEUSIA [None]
  - DYSPNOEA [None]
  - FATIGUE [None]
  - PAIN [None]
  - TOOTH DISORDER [None]
  - WEIGHT DECREASED [None]
